FAERS Safety Report 8461885-5 (Version None)
Quarter: 2012Q2

REPORT INFORMATION
  Report Type: 
  Country: None (occurrence: None)
  Receive Date: 20120625
  Receipt Date: 20120618
  Transmission Date: 20120825
  Serious: Yes (Death, Hospitalization)
  Sender: FDA-Public Use
  Company Number: ES-ASTELLAS-2012US005558

PATIENT
  Sex: Male

DRUGS (6)
  1. ERLOTINIB HYDROCHLORIDE [Suspect]
     Indication: LUNG NEOPLASM MALIGNANT
     Dosage: 150 MG, UID/QD
     Route: 048
     Dates: start: 20120522, end: 20120610
  2. ACIDO ACETIL SALICILICO [Concomitant]
     Indication: PROPHYLAXIS
     Dosage: 100 MG, UID/QD
     Route: 048
  3. EPLERENONE [Concomitant]
     Indication: CARDIAC DISORDER
     Dosage: 25 MG, UID/QD
     Route: 048
  4. ENOXAPARINA [Concomitant]
     Indication: PROPHYLAXIS
     Dosage: 120 MG, UID/QD
     Route: 058
  5. MIRTAZAPINE [Concomitant]
     Indication: DEPRESSION
     Dosage: 15 MG, UID/QD
     Route: 048
  6. CLOPIDOGREL                        /01220707/ [Concomitant]
     Indication: PROPHYLAXIS
     Dosage: 75 MG, UID/QD
     Route: 048

REACTIONS (6)
  - GENERAL PHYSICAL HEALTH DETERIORATION [None]
  - GASTROINTESTINAL PAIN [None]
  - HYPOKALAEMIA [None]
  - HYPONATRAEMIA [None]
  - ASTHENIA [None]
  - DYSPNOEA [None]
